FAERS Safety Report 11850992 (Version 1)
Quarter: 2015Q4

REPORT INFORMATION
  Report Type: Spontaneous
  Country: US (occurrence: US)
  Receive Date: 20151218
  Receipt Date: 20151218
  Transmission Date: 20160305
  Serious: No
  Sender: FDA-Public Use
  Company Number: US-JNJFOC-20150403640

PATIENT
  Age: 56 Year
  Sex: Male
  Weight: 81.65 kg

DRUGS (5)
  1. MULTIVITAMINS [Concomitant]
     Active Substance: VITAMINS
     Indication: ROUTINE HEALTH MAINTENANCE
     Dosage: ABOUT A YEAR
     Route: 065
  2. CRESTOR [Concomitant]
     Active Substance: ROSUVASTATIN CALCIUM
     Indication: BLOOD CHOLESTEROL
     Dosage: COUPLE YEARS
     Route: 065
  3. MENS ROGAINE EXTRA STRENGTH [Suspect]
     Active Substance: MINOXIDIL
     Indication: ALOPECIA
     Dosage: HALF CAP
     Route: 061
     Dates: start: 20150323
  4. MENS ROGAINE EXTRA STRENGTH [Suspect]
     Active Substance: MINOXIDIL
     Route: 061
  5. VASCOR [Concomitant]
     Active Substance: BEPRIDIL HYDROCHLORIDE
     Indication: PROPHYLAXIS
     Dosage: 2 YEARS
     Route: 065

REACTIONS (1)
  - Alopecia [Not Recovered/Not Resolved]
